FAERS Safety Report 8110201-7 (Version None)
Quarter: 2012Q1

REPORT INFORMATION
  Report Type: 
  Country: None (occurrence: None)
  Receive Date: 20120202
  Receipt Date: 20120126
  Transmission Date: 20120608
  Serious: No
  Sender: FDA-Public Use
  Company Number: US-AMGEN-USASP2012002931

PATIENT
  Age: 49 Year
  Sex: Female

DRUGS (7)
  1. VESICARE [Concomitant]
     Dosage: 5 MG, UNK
  2. CYMBALTA [Concomitant]
     Dosage: 30 MG, UNK
  3. PREDNISONE TAB [Concomitant]
     Dosage: 1 MG, UNK
  4. METHOTREXATE [Concomitant]
     Dosage: 2.5 MG, UNK
  5. ENBREL [Suspect]
     Indication: RHEUMATOID ARTHRITIS
     Dosage: 50 MG/ML, QWK
     Route: 058
     Dates: start: 20111202
  6. ESTRADERM [Concomitant]
     Dosage: 0.1 MG, UNK
  7. FOLIC ACID [Concomitant]
     Dosage: UNK

REACTIONS (4)
  - INJECTION SITE NODULE [None]
  - INJECTION SITE PRURITUS [None]
  - INJECTION SITE ERYTHEMA [None]
  - INJECTION SITE PAIN [None]
